FAERS Safety Report 10220329 (Version 1)
Quarter: 2014Q2

REPORT INFORMATION
  Report Type: Report from Study
  Country: TH (occurrence: TH)
  Receive Date: 20140606
  Receipt Date: 20140606
  Transmission Date: 20141212
  Serious: Yes (Hospitalization)
  Sender: FDA-Public Use
  Company Number: TH-MERCK-1406USA001747

PATIENT
  Age: 52 Year
  Sex: Male

DRUGS (6)
  1. PEGINTERFERON ALFA-2B [Suspect]
     Indication: HEPATITIS C
     Dosage: STRENGTH 50 MICROGRAM,PEN, TOTAL DAILY DOSE 0.45, QW
     Route: 058
     Dates: start: 20140411
  2. PEGINTERFERON ALFA-2B [Suspect]
     Dosage: STRENGTH 50 MICROGRAM,0.3 CC WEEKLY
     Route: 058
  3. RIBAVIRIN [Suspect]
     Indication: HEPATITIS C
     Dosage: 200 MG, BID
     Route: 048
     Dates: start: 20140411
  4. EFAVIRENZ [Concomitant]
     Indication: HIV INFECTION
     Dosage: 300 MG, QD
     Route: 048
     Dates: start: 200508
  5. LAMIVUDINE [Concomitant]
     Indication: HIV INFECTION
     Dosage: 300 MG, QD
     Route: 048
     Dates: start: 200508
  6. TENOFOVIR [Concomitant]
     Indication: HIV INFECTION
     Dosage: 300 MG, QD
     Route: 048
     Dates: start: 200806

REACTIONS (1)
  - Thrombocytopenia [Recovered/Resolved]
